FAERS Safety Report 24055997 (Version 1)
Quarter: 2024Q3

REPORT INFORMATION
  Report Type: Spontaneous
  Country: FR (occurrence: FR)
  Receive Date: 20240705
  Receipt Date: 20240705
  Transmission Date: 20241017
  Serious: Yes (Other)
  Sender: PFIZER
  Company Number: None

PATIENT
  Age: 45 Year
  Sex: Female

DRUGS (1)
  1. CLINDAMYCIN [Suspect]
     Active Substance: CLINDAMYCIN
     Indication: Skin laceration
     Dosage: 300 MG, 3X/DAY (FREQUENCY: 8 HOURS)
     Route: 048
     Dates: start: 20240304, end: 20240308

REACTIONS (4)
  - Urinary retention [Recovering/Resolving]
  - Menstrual clots [Recovering/Resolving]
  - Haemorrhoids [Recovering/Resolving]
  - Off label use [Unknown]

NARRATIVE: CASE EVENT DATE: 20240304
